FAERS Safety Report 9017663 (Version 1)
Quarter: 2013Q1

REPORT INFORMATION
  Report Type: Spontaneous
  Country: US (occurrence: US)
  Receive Date: 20130118
  Receipt Date: 20130118
  Transmission Date: 20140127
  Serious: Yes (Other)
  Sender: FDA-Public Use
  Company Number: US-AMGEN-USASP2013003166

PATIENT
  Sex: Female
  Weight: 65.76 kg

DRUGS (7)
  1. ENBREL [Suspect]
     Indication: RHEUMATOID ARTHRITIS
     Dosage: 50 MG, QWK
     Route: 058
  2. METHOTREXATE [Concomitant]
     Dosage: 2.5 MG, UNK
  3. FISH OIL [Concomitant]
  4. VITAMIN D /00107901/ [Concomitant]
     Dosage: 1000 UNIT, UNK
  5. CALCIUM D                          /00944201/ [Concomitant]
     Dosage: UNK
  6. NAPROXEN [Concomitant]
     Dosage: 500 MG, UNK
  7. FOLIC ACID [Concomitant]
     Dosage: UNK

REACTIONS (2)
  - Depressed mood [Unknown]
  - Crying [Unknown]
